FAERS Safety Report 11432602 (Version 3)
Quarter: 2015Q3

REPORT INFORMATION
  Report Type: Spontaneous
  Country: JP (occurrence: JP)
  Receive Date: 20150828
  Receipt Date: 20150925
  Transmission Date: 20151125
  Serious: Yes (Hospitalization, Other)
  Sender: FDA-Public Use
  Company Number: JP-BRISTOL-MYERS SQUIBB COMPANY-BMS-2015-056033

PATIENT
  Age: 51 Year
  Sex: Male

DRUGS (8)
  1. CISPLATIN. [Suspect]
     Active Substance: CISPLATIN
     Indication: HYPOPHARYNGEAL CANCER
     Dosage: 70 MG/ML, Q3WK
     Route: 041
     Dates: start: 20150707, end: 20150707
  2. ERBITUX [Suspect]
     Active Substance: CETUXIMAB
     Dosage: 250 MG/M2, QWK
     Route: 041
     Dates: start: 20150714, end: 20150721
  3. DOCETAXEL. [Suspect]
     Active Substance: DOCETAXEL
     Dosage: 70 MG/M2, Q2WK
     Route: 041
     Dates: start: 20150728, end: 20150728
  4. JANUVIA [Concomitant]
     Active Substance: SITAGLIPTIN PHOSPHATE
     Indication: DIABETES MELLITUS
     Route: 048
  5. ERBITUX [Suspect]
     Active Substance: CETUXIMAB
     Indication: HYPOPHARYNGEAL CANCER
     Dosage: 400 MG/M2, QWK
     Route: 041
     Dates: start: 20150707, end: 20150707
  6. ERBITUX [Suspect]
     Active Substance: CETUXIMAB
     Dosage: 250 MG/M2, QWK
     Route: 041
     Dates: start: 20150728, end: 20150811
  7. CISPLATIN. [Suspect]
     Active Substance: CISPLATIN
     Dosage: 70 MG/M2, Q2WK
     Route: 041
     Dates: start: 20150728, end: 20150728
  8. DOCETAXEL. [Suspect]
     Active Substance: DOCETAXEL
     Indication: HYPOPHARYNGEAL CANCER
     Dosage: 70 MG/M2, Q3WK
     Route: 041
     Dates: start: 20150707, end: 20150707

REACTIONS (7)
  - Dermatitis acneiform [Unknown]
  - Cutaneous symptom [Unknown]
  - Alopecia [Unknown]
  - Constipation [Not Recovered/Not Resolved]
  - Pneumatosis intestinalis [Recovered/Resolved]
  - Nausea [Unknown]
  - Decreased appetite [Unknown]

NARRATIVE: CASE EVENT DATE: 20150728
